FAERS Safety Report 7176479-1 (Version None)
Quarter: 2010Q4

REPORT INFORMATION
  Report Type: 
  Country: None (occurrence: None)
  Receive Date: 20101220
  Receipt Date: 20101207
  Transmission Date: 20110411
  Serious: Yes (Hospitalization)
  Sender: FDA-Public Use
  Company Number: IT-JNJFOC-20101204761

PATIENT
  Sex: Male
  Weight: 28.8 kg

DRUGS (7)
  1. REMICADE [Suspect]
     Indication: CROHN'S DISEASE
     Route: 042
  2. REMICADE [Suspect]
     Route: 042
  3. AZATHIOPRINE [Concomitant]
  4. PPI [Concomitant]
  5. ANTIBIOTICS [Concomitant]
     Indication: CROHN'S DISEASE
  6. PREDNISONE [Concomitant]
  7. MESALAMINE [Concomitant]
     Route: 054

REACTIONS (1)
  - CROHN'S DISEASE [None]
